FAERS Safety Report 21255003 (Version 1)
Quarter: 2022Q3

REPORT INFORMATION
  Report Type: Spontaneous
  Country: US (occurrence: None)
  Receive Date: 20220824
  Receipt Date: 20220824
  Transmission Date: 20221027
  Serious: Yes (Other)
  Sender: FDA-Public Use
  Company Number: None

PATIENT
  Age: 50 Year
  Sex: Female
  Weight: 55.79 kg

DRUGS (1)
  1. LIOTHYRONINE [Suspect]
     Active Substance: LIOTHYRONINE
     Indication: Brain abscess
     Dosage: 2 TABLETS DAILY BY MOUTH?
     Route: 048
     Dates: start: 20170616, end: 20170701

REACTIONS (1)
  - Illness [None]

NARRATIVE: CASE EVENT DATE: 20170616
